FAERS Safety Report 14066150 (Version 3)
Quarter: 2018Q2

REPORT INFORMATION
  Report Type: Report from Study
  Country: US (occurrence: US)
  Receive Date: 20171010
  Receipt Date: 20180430
  Transmission Date: 20180711
  Serious: Yes (Other)
  Sender: FDA-Public Use
  Company Number: PHEH2017US032461

PATIENT
  Sex: Male

DRUGS (4)
  1. COSENTYX [Suspect]
     Active Substance: SECUKINUMAB
     Dosage: 300 MG, QMO
     Route: 058
  2. COSENTYX [Suspect]
     Active Substance: SECUKINUMAB
     Indication: PRODUCT USED FOR UNKNOWN INDICATION
     Dosage: UNK UNK, QW (LOADING DOSES)
     Route: 058
  3. COSENTYX [Suspect]
     Active Substance: SECUKINUMAB
     Dosage: 150 MG, UNK
     Route: 058
  4. COSENTYX [Suspect]
     Active Substance: SECUKINUMAB
     Dosage: 300 MG, UNK (FIRST AND FIFTEENTH OF EACH MONTH)
     Route: 058

REACTIONS (21)
  - Blister [Unknown]
  - Skin haemorrhage [Unknown]
  - Skin fissures [Unknown]
  - Rash [Unknown]
  - Loss of consciousness [Unknown]
  - Fall [Unknown]
  - Throat tightness [Unknown]
  - Pruritus [Unknown]
  - Off label use [Unknown]
  - Psoriasis [Unknown]
  - Pain in extremity [Unknown]
  - Skin burning sensation [Unknown]
  - Skin exfoliation [Unknown]
  - Localised infection [Unknown]
  - Dyspnoea [Unknown]
  - Pain [Unknown]
  - Drug ineffective [Unknown]
  - Skin lesion [Unknown]
  - Peripheral swelling [Unknown]
  - Gait disturbance [Unknown]
  - Hypotension [Unknown]
